FAERS Safety Report 6889961-9 (Version None)
Quarter: 2010Q3

REPORT INFORMATION
  Report Type: 
  Country: None (occurrence: None)
  Receive Date: 20100730
  Receipt Date: 20080623
  Transmission Date: 20110219
  Serious: No
  Sender: FDA-Public Use
  Company Number: US-PFIZER INC-2008052675

PATIENT
  Sex: Male
  Weight: 63.636 kg

DRUGS (1)
  1. LIPITOR [Suspect]
     Indication: CORONARY ARTERY EMBOLISM
     Route: 048
     Dates: start: 20080301

REACTIONS (4)
  - ARTHRALGIA [None]
  - MYALGIA [None]
  - PAIN [None]
  - PAIN IN EXTREMITY [None]
